FAERS Safety Report 4380293-X (Version None)
Quarter: 2004Q2

REPORT INFORMATION
  Report Type: 
  Country: None (occurrence: None)
  Receive Date: 20040614
  Receipt Date: 20040601
  Transmission Date: 20050107
  Serious: Yes (Other)
  Sender: FDA-Public Use
  Company Number: 2004033639

PATIENT
  Age: 68 Year
  Sex: Female

DRUGS (11)
  1. LIPITOR [Suspect]
     Indication: HYPERCHOLESTEROLAEMIA
     Dosage: 10 MG (1 IN 1 D), ORAL
     Route: 048
     Dates: start: 20020716, end: 20030425
  2. AMLODIPINE BESYLATE [Suspect]
     Indication: HYPERTENSION
     Dosage: 5 MG (1 IN 1 D), ORAL
     Route: 048
     Dates: start: 20020716, end: 20030401
  3. CARDENALIN (DOXAZOSIN MESILATE) (DOXAZOSIN) [Suspect]
     Indication: HYPERTENSION
     Dosage: 2 MG (1 IN 1 D), ORAL
     Route: 048
     Dates: start: 20020716, end: 20030401
  4. CEFZON (CEFDINIR) (CEFDINIR) [Suspect]
     Indication: RASH PUSTULAR
     Dosage: 300 MG (1 IN 1 D), ORAL
     Route: 048
     Dates: start: 20020909, end: 20020910
  5. KETOPROFEN [Suspect]
     Indication: BACK PAIN
     Dosage: (1 IN 1 D), TRANSDERMAL
     Route: 062
     Dates: start: 20020813
  6. TICLOPIDINE HCL [Suspect]
     Indication: ANGINA PECTORIS
     Dosage: 200 MG (1 IN 1 D), TRANSDERMAL
     Route: 062
     Dates: start: 20020716, end: 20030401
  7. TIZANIDINE HCL [Concomitant]
  8. MECOBALAMIN (MECOBALAMIN) [Concomitant]
  9. TROXIPIDE (TROXIPIDE) [Concomitant]
  10. CIMETIDINE [Concomitant]
  11. FUROSEMIDE [Concomitant]

REACTIONS (12)
  - ABDOMINAL HERNIA [None]
  - ANAEMIA [None]
  - APPLICATION SITE DERMATITIS [None]
  - APPLICATION SITE ECZEMA [None]
  - APPLICATION SITE PUSTULES [None]
  - BLOOD PRESSURE DIASTOLIC INCREASED [None]
  - BLOOD PRESSURE SYSTOLIC INCREASED [None]
  - DECREASED APPETITE [None]
  - GASTRITIS [None]
  - HAEMATOCRIT DECREASED [None]
  - MALAISE [None]
  - RENAL FAILURE CHRONIC [None]
